FAERS Safety Report 9643698 (Version 2)
Quarter: 2013Q4

REPORT INFORMATION
  Report Type: Report from Study
  Country: AU (occurrence: AU)
  Receive Date: 20131024
  Receipt Date: 20131024
  Transmission Date: 20140711
  Serious: Yes (Hospitalization)
  Sender: FDA-Public Use
  Company Number: AU-BRISTOL-MYERS SQUIBB COMPANY-18554949

PATIENT
  Age: 69 Year
  Sex: Male
  Weight: 60.77 kg

DRUGS (2)
  1. BYDUREON [Suspect]
     Indication: TYPE 2 DIABETES MELLITUS
     Dates: start: 20121003
  2. BLINDED: PLACEBO [Suspect]

REACTIONS (1)
  - Injection site abscess [Recovered/Resolved]
